FAERS Safety Report 10698525 (Version 1)
Quarter: 2015Q1

REPORT INFORMATION
  Report Type: Spontaneous
  Country: DE (occurrence: DE)
  Receive Date: 20150108
  Receipt Date: 20150108
  Transmission Date: 20150721
  Serious: Yes (Hospitalization)
  Sender: FDA-Public Use
  Company Number: DE-TEVA-531723GER

PATIENT
  Age: 49 Year
  Sex: Male

DRUGS (2)
  1. OLANZAPINE. [Suspect]
     Active Substance: OLANZAPINE
     Route: 065
     Dates: end: 20120116
  2. AMISULPRID [Interacting]
     Active Substance: AMISULPRIDE
     Route: 065
     Dates: end: 20120116

REACTIONS (3)
  - Electrocardiogram QT prolonged [Recovered/Resolved]
  - Erectile dysfunction [Recovering/Resolving]
  - Drug interaction [Recovering/Resolving]

NARRATIVE: CASE EVENT DATE: 20100101
